FAERS Safety Report 19090556 (Version 2)
Quarter: 2021Q2

REPORT INFORMATION
  Report Type: Spontaneous
  Country: RO (occurrence: RO)
  Receive Date: 20210405
  Receipt Date: 20210405
  Transmission Date: 20210717
  Serious: Yes (Death)
  Sender: FDA-Public Use
  Company Number: RO-ABBVIE-21K-135-3844335-00

PATIENT
  Age: 52 Year
  Sex: Male

DRUGS (4)
  1. VENCLYXTO [Suspect]
     Active Substance: VENETOCLAX
     Indication: CHRONIC LYMPHOCYTIC LEUKAEMIA
     Route: 048
     Dates: start: 202006, end: 202101
  2. RITUXIMAB. [Concomitant]
     Active Substance: RITUXIMAB
     Indication: CHRONIC LYMPHOCYTIC LEUKAEMIA
     Dates: start: 202007
  3. VENCLYXTO [Suspect]
     Active Substance: VENETOCLAX
     Route: 048
     Dates: start: 202102, end: 202104
  4. ASPENTER [Concomitant]
     Active Substance: ASPIRIN
     Indication: PRODUCT USED FOR UNKNOWN INDICATION

REACTIONS (6)
  - Supraventricular extrasystoles [Fatal]
  - Pulmonary hypertension [Fatal]
  - Food refusal [Fatal]
  - Aphthous ulcer [Unknown]
  - Depression [Fatal]
  - COVID-19 [Recovered/Resolved]

NARRATIVE: CASE EVENT DATE: 202007
